FAERS Safety Report 10301285 (Version 1)
Quarter: 2014Q3

REPORT INFORMATION
  Report Type: Spontaneous
  Country: US (occurrence: None)
  Receive Date: 20140709
  Receipt Date: 20140709
  Transmission Date: 20150326
  Serious: No
  Sender: FDA-Public Use
  Company Number: None

PATIENT
  Age: 78 Year
  Sex: Male
  Weight: 72.58 kg

DRUGS (5)
  1. VENTORIN HFA (ALBUTLROL SULFATE) [Concomitant]
  2. FINASTERIDE. [Concomitant]
     Active Substance: FINASTERIDE
  3. ADVAIR DISKUS [Suspect]
     Active Substance: FLUTICASONE PROPIONATE\SALMETEROL XINAFOATE
     Indication: CHRONIC OBSTRUCTIVE PULMONARY DISEASE
     Dosage: 250 MCG/50MCG?2 PUGGD PRT FSY ?ONE DOSE, TWICE DAILY ?INHALATION
     Route: 055
     Dates: start: 2011, end: 20140630
  4. TAMSULOSIN HCL [Concomitant]
     Active Substance: TAMSULOSIN
  5. ASPIRIN. [Concomitant]
     Active Substance: ASPIRIN

REACTIONS (2)
  - Device malfunction [None]
  - No therapeutic response [None]

NARRATIVE: CASE EVENT DATE: 201404
